FAERS Safety Report 14038376 (Version 2)
Quarter: 2018Q3

REPORT INFORMATION
  Report Type: Report from Study
  Country: US (occurrence: US)
  Receive Date: 20171004
  Receipt Date: 20180806
  Transmission Date: 20181010
  Serious: Yes (Death, Other)
  Sender: FDA-Public Use
  Company Number: US-ROCHE-1956168

PATIENT

DRUGS (4)
  1. RETEPLASE [Suspect]
     Active Substance: RETEPLASE
     Indication: THROMBOLYSIS
     Route: 065
  2. STREPTOKINASE [Suspect]
     Active Substance: STREPTOKINASE
     Indication: THROMBOLYSIS
     Route: 065
  3. ALTEPLASE. [Suspect]
     Active Substance: ALTEPLASE
     Indication: THROMBOLYSIS
     Route: 065
  4. ABCIXIMAB [Suspect]
     Active Substance: ABCIXIMAB
     Indication: ISCHAEMIA
     Route: 065

REACTIONS (10)
  - Gastrointestinal haemorrhage [Unknown]
  - Urogenital haemorrhage [Unknown]
  - Haemorrhage [Unknown]
  - Epistaxis [Unknown]
  - Haemorrhage intracranial [Fatal]
  - Retroperitoneal haemorrhage [Unknown]
  - Puncture site haemorrhage [Unknown]
  - Haemoptysis [Unknown]
  - Post procedural haemorrhage [Unknown]
  - Haemorrhagic stroke [Unknown]
